FAERS Safety Report 5424325-6 (Version None)
Quarter: 2007Q3

REPORT INFORMATION
  Report Type: 
  Country: None (occurrence: None)
  Receive Date: 20070731
  Receipt Date: 20070522
  Transmission Date: 20080115
  Serious: No
  Sender: FDA-Public Use
  Company Number: US200706000529

PATIENT
  Age: 57 Year
  Sex: Female

DRUGS (8)
  1. BYETTA [Suspect]
     Indication: DIABETES MELLITUS
     Dosage: SEE IIMAGE
     Route: 058
     Dates: start: 20050601, end: 20050701
  2. BYETTA [Suspect]
     Indication: DIABETES MELLITUS
     Dosage: SEE IIMAGE
     Route: 058
     Dates: start: 20070514, end: 20070519
  3. BYETTA [Suspect]
     Indication: DIABETES MELLITUS
     Dosage: SEE IIMAGE
     Route: 058
     Dates: start: 20051001
  4. BYETTA [Suspect]
     Indication: DIABETES MELLITUS
     Dosage: SEE IIMAGE
     Route: 058
     Dates: start: 20070520
  5. EXENATIDE (EXENATIDE) [Concomitant]
  6. INSULIN [Concomitant]
  7. GLUCOPHAGE [Concomitant]
  8. ACTOS [Concomitant]

REACTIONS (4)
  - ANXIETY [None]
  - DIZZINESS [None]
  - FEELING JITTERY [None]
  - NIGHTMARE [None]
